FAERS Safety Report 19503238 (Version 2)
Quarter: 2022Q2

REPORT INFORMATION
  Report Type: Spontaneous
  Country: US (occurrence: US)
  Receive Date: 20210707
  Receipt Date: 20220621
  Transmission Date: 20220721
  Serious: Yes (Other)
  Sender: FDA-Public Use
  Company Number: US-ROCHE-2659865

PATIENT
  Sex: Female
  Weight: 127.12 kg

DRUGS (8)
  1. CELLCEPT [Suspect]
     Active Substance: MYCOPHENOLATE MOFETIL
     Indication: Muscle necrosis
     Dosage: YES
     Route: 051
     Dates: start: 20200623
  2. PREDNISONE [Concomitant]
     Active Substance: PREDNISONE
     Route: 051
     Dates: start: 20200808
  3. PREDNISONE [Concomitant]
     Active Substance: PREDNISONE
     Route: 051
     Dates: start: 202007, end: 202008
  4. PREDNISONE [Concomitant]
     Active Substance: PREDNISONE
     Route: 051
     Dates: start: 20200623, end: 202007
  5. ESOMEPRAZOLE [Concomitant]
     Active Substance: ESOMEPRAZOLE
     Indication: Gastrooesophageal reflux disease
     Route: 051
     Dates: start: 20200623
  6. LINZESS [Concomitant]
     Active Substance: LINACLOTIDE
     Indication: Constipation
     Route: 051
     Dates: start: 20200623
  7. FOLIC ACID [Concomitant]
     Active Substance: FOLIC ACID
     Route: 051
     Dates: start: 20200623
  8. LEVOTHYROXINE [Concomitant]
     Active Substance: LEVOTHYROXINE
     Route: 051
     Dates: start: 202006

REACTIONS (3)
  - Intentional product use issue [Unknown]
  - Off label use [Unknown]
  - Device related infection [Unknown]
